FAERS Safety Report 5244614-8 (Version None)
Quarter: 2007Q1

REPORT INFORMATION
  Report Type: 
  Country: None (occurrence: None)
  Receive Date: 20070222
  Receipt Date: 20070207
  Transmission Date: 20070707
  Serious: Yes (Other)
  Sender: FDA-Public Use
  Company Number: US-SHR-US-2007-004458

PATIENT
  Age: 64 Year
  Sex: Female
  Weight: 64.399 kg

DRUGS (6)
  1. CAMPATH [Suspect]
     Dosage: Q2 WEEKS
     Route: 058
     Dates: end: 20070110
  2. PREVACID [Concomitant]
     Route: 048
  3. TENORMIN [Concomitant]
     Indication: WOLFF-PARKINSON-WHITE SYNDROME
     Route: 048
  4. ACYCLOVIR [Concomitant]
     Indication: INFECTION PROPHYLAXIS
     Route: 048
  5. BACTRIM [Concomitant]
     Indication: INFECTION PROPHYLAXIS
     Dosage: 3X WEEKLY
     Route: 048
  6. PYRIDIUM [Concomitant]
     Route: 048

REACTIONS (3)
  - DIARRHOEA [None]
  - INJECTION SITE INFECTION [None]
  - MYCOBACTERIUM CHELONEI INFECTION [None]
